FAERS Safety Report 11589674 (Version 5)
Quarter: 2017Q1

REPORT INFORMATION
  Report Type: Spontaneous
  Country: US (occurrence: US)
  Receive Date: 20151002
  Receipt Date: 20170301
  Transmission Date: 20170428
  Serious: Yes (Other)
  Sender: FDA-Public Use
  Company Number: US-JNJFOC-20150912341

PATIENT
  Sex: Male

DRUGS (5)
  1. RISPERDAL [Suspect]
     Active Substance: RISPERIDONE
     Indication: HALLUCINATION, AUDITORY
     Dosage: IN VARYING DOSES OF 0.25 MG AND 0.5 MG
     Route: 048
     Dates: start: 20020313, end: 2009
  2. RISPERDAL [Suspect]
     Active Substance: RISPERIDONE
     Indication: POST-TRAUMATIC STRESS DISORDER
     Dosage: IN VARYING DOSES OF 0.25 MG AND 0.5 MG
     Route: 048
     Dates: start: 20020313, end: 2009
  3. RISPERDAL [Suspect]
     Active Substance: RISPERIDONE
     Indication: CONDUCT DISORDER
     Dosage: IN VARYING DOSES OF 0.25 MG AND 0.5 MG
     Route: 048
     Dates: start: 20020313, end: 2009
  4. RISPERDAL [Suspect]
     Active Substance: RISPERIDONE
     Indication: PSYCHOTIC DISORDER
     Dosage: IN VARYING DOSES OF 0.25 MG AND 0.5 MG
     Route: 048
     Dates: start: 20020313, end: 2009
  5. RISPERDAL [Suspect]
     Active Substance: RISPERIDONE
     Indication: ATTENTION DEFICIT/HYPERACTIVITY DISORDER
     Dosage: IN VARYING DOSES OF 0.25 MG AND 0.5 MG
     Route: 048
     Dates: start: 20020313, end: 2009

REACTIONS (4)
  - Hyperprolactinaemia [Unknown]
  - Extrapyramidal disorder [Unknown]
  - Gynaecomastia [Unknown]
  - Obesity [Unknown]
